FAERS Safety Report 4932009-3 (Version None)
Quarter: 2006Q1

REPORT INFORMATION
  Report Type: 
  Country: None (occurrence: None)
  Receive Date: 20060303
  Receipt Date: 20060222
  Transmission Date: 20060701
  Serious: Yes (Other)
  Sender: FDA-Public Use
  Company Number: JP-GLAXOSMITHKLINE-B0413286A

PATIENT
  Age: 36 Year
  Sex: Male

DRUGS (5)
  1. EPIVIR [Suspect]
     Indication: HIV INFECTION
     Dosage: 150MG TWICE PER DAY
     Route: 048
     Dates: start: 20040214
  2. RETROVIR [Suspect]
     Indication: HIV INFECTION
     Route: 048
     Dates: start: 20040214
  3. KALETRA [Concomitant]
     Indication: HIV INFECTION
     Route: 048
     Dates: start: 20040214
  4. ZITHROMAC [Concomitant]
     Dosage: 600MG TWO TIMES PER WEEK
     Route: 048
     Dates: start: 20040214
  5. COTRIM [Concomitant]
     Dosage: 1000MG PER DAY
     Route: 048
     Dates: start: 20040214

REACTIONS (1)
  - BONE MARROW FAILURE [None]
